FAERS Safety Report 12740362 (Version 2)
Quarter: 2016Q4

REPORT INFORMATION
  Report Type: Spontaneous
  Country: US (occurrence: US)
  Receive Date: 20160913
  Receipt Date: 20161005
  Transmission Date: 20170207
  Serious: No
  Sender: FDA-Public Use
  Company Number: US-PFIZER INC-2016424988

PATIENT
  Age: 74 Year
  Sex: Male

DRUGS (1)
  1. LORAZEPAM. [Suspect]
     Active Substance: LORAZEPAM
     Dosage: 5 MG, DAILY (1 MG TABLET, TAKE 1 1/2 TABLET IN MORNING AND NOON, AND 2 TABS AT BEDTIME)

REACTIONS (2)
  - Drug hypersensitivity [Unknown]
  - Confusional state [Unknown]
